FAERS Safety Report 5284293-7 (Version None)
Quarter: 2007Q2

REPORT INFORMATION
  Report Type: 
  Country: None (occurrence: None)
  Receive Date: 20070403
  Receipt Date: 20070322
  Transmission Date: 20071010
  Serious: Yes (Hospitalization)
  Sender: FDA-Public Use
  Company Number: US-AMGEN-STX216089

PATIENT
  Sex: Female

DRUGS (4)
  1. ENBREL [Suspect]
     Indication: PSORIATIC ARTHROPATHY
     Route: 065
     Dates: start: 20061122
  2. METHOTREXATE [Concomitant]
     Route: 065
     Dates: start: 20060801
  3. TYLENOL W/ CODEINE NO. 3 [Concomitant]
     Route: 065
  4. XANAX [Concomitant]
     Route: 065

REACTIONS (1)
  - ACUTE MYELOID LEUKAEMIA [None]
